FAERS Safety Report 14995996 (Version 1)
Quarter: 2018Q2

REPORT INFORMATION
  Report Type: Spontaneous
  Country: US (occurrence: US)
  Receive Date: 20180522
  Receipt Date: 20180522
  Transmission Date: 20180711
  Serious: Yes (Other)
  Sender: FDA-Public Use
  Company Number: None

PATIENT
  Age: 75 Year
  Sex: Female
  Weight: 74.25 kg

DRUGS (1)
  1. PROLIA [Suspect]
     Active Substance: DENOSUMAB
     Indication: OSTEOPOROSIS
     Dosage: SC EVERY 6 MONTHS?
     Route: 058
     Dates: start: 20171117

REACTIONS (7)
  - Musculoskeletal stiffness [None]
  - Muscular weakness [None]
  - Fatigue [None]
  - Pollakiuria [None]
  - Drug effect decreased [None]
  - Musculoskeletal pain [None]
  - Arthralgia [None]

NARRATIVE: CASE EVENT DATE: 20171117
